FAERS Safety Report 5605509-0 (Version None)
Quarter: 2008Q1

REPORT INFORMATION
  Report Type: 
  Country: None (occurrence: None)
  Receive Date: 20080124
  Receipt Date: 20080124
  Transmission Date: 20080703
  Serious: Yes (Hospitalization)
  Sender: FDA-Public Use
  Company Number: None

PATIENT
  Age: 48 Year
  Sex: Female
  Weight: 56.6996 kg

DRUGS (1)
  1. IXEMPRA -IXABEPILONE- 45 MG INJECTION BRISTOL-MYERS SQUIBB COMPANY [Suspect]
     Indication: BREAST CANCER METASTATIC
     Dosage: 40 MG/M2 INITIAL DOSE OVER 3 HOURS IV DRIP; REDUCED DOSE BEFORE ADMISSION
     Route: 041

REACTIONS (6)
  - BLOOD BILIRUBIN INCREASED [None]
  - DIARRHOEA [None]
  - ELECTROLYTE IMBALANCE [None]
  - HEPATIC ENZYME INCREASED [None]
  - HYPOKALAEMIA [None]
  - VOMITING [None]
